FAERS Safety Report 21629160 (Version 2)
Quarter: 2023Q1

REPORT INFORMATION
  Report Type: Spontaneous
  Country: US (occurrence: US)
  Receive Date: 20221122
  Receipt Date: 20230105
  Transmission Date: 20230418
  Serious: No
  Sender: FDA-Public Use
  Company Number: US-SA-SAC20221117001088

PATIENT
  Age: 14 Year
  Sex: Male
  Weight: 75.74 kg

DRUGS (1)
  1. CEREZYME [Suspect]
     Active Substance: IMIGLUCERASE
     Indication: Gaucher^s disease
     Dosage: 4800 U, QOW
     Route: 042
     Dates: start: 20200804

REACTIONS (1)
  - Weight decreased [Unknown]
